FAERS Safety Report 19379806 (Version 1)
Quarter: 2021Q2

REPORT INFORMATION
  Report Type: Spontaneous
  Country: IT (occurrence: IT)
  Receive Date: 20210607
  Receipt Date: 20210607
  Transmission Date: 20210717
  Serious: Yes (Hospitalization)
  Sender: FDA-Public Use
  Company Number: IT-TEVA-2021-IT-1919932

PATIENT
  Age: 10 Year
  Sex: Female

DRUGS (9)
  1. MYCOPHENOLATE MOFETIL. [Suspect]
     Active Substance: MYCOPHENOLATE MOFETIL
     Indication: PROPHYLAXIS AGAINST GRAFT VERSUS HOST DISEASE
     Route: 065
  2. GANCICLOVIR. [Suspect]
     Active Substance: GANCICLOVIR
     Indication: CYTOMEGALOVIRUS INFECTION
     Dosage: 10 MG/KG DAILY; COMBINED DUAL ANTIVIRAL THERAPY
     Route: 065
  3. CYTOTECT CP [Concomitant]
     Active Substance: HUMAN CYTOMEGALOVIRUS IMMUNE GLOBULIN
     Dosage: 200 U/KG/DOSE FOR FIVE CONSECUTIVE DAYS EVERY WEEK
     Route: 050
  4. FOSCARNET [Suspect]
     Active Substance: FOSCARNET
     Indication: ANTIVIRAL TREATMENT
     Dosage: ANTIVIRAL TREATMENT PRIOR TO ALLOGENEIC HAEMATOPOIETIC STEM CELL TRANSPLANT
     Route: 065
  5. TACROLIMUS. [Suspect]
     Active Substance: TACROLIMUS
     Indication: PROPHYLAXIS AGAINST GRAFT VERSUS HOST DISEASE
     Route: 065
  6. GANCICLOVIR. [Suspect]
     Active Substance: GANCICLOVIR
     Indication: ANTIVIRAL TREATMENT
     Dosage: ANTIVIRAL TREATMENT PRIOR TO ALLOGENEIC HAEMATOPOIETIC STEM CELL TRANSPLANT
     Route: 065
  7. VALGANCICLOVIR. [Concomitant]
     Active Substance: VALGANCICLOVIR
     Indication: ANTIVIRAL TREATMENT
     Route: 065
  8. CYTOTECT CP [Concomitant]
     Active Substance: HUMAN CYTOMEGALOVIRUS IMMUNE GLOBULIN
     Indication: CYTOMEGALOVIRUS INFECTION
     Dosage: 200 U/KG/DOSE
     Route: 050
  9. FOSCARNET [Suspect]
     Active Substance: FOSCARNET
     Indication: CYTOMEGALOVIRUS INFECTION
     Dosage: 1800 MG/KG DAILY; COMBINED DUAL ANTIVIRAL THERAPY
     Route: 065

REACTIONS (10)
  - Human herpesvirus 6 infection [Recovered/Resolved]
  - Renal impairment [Recovered/Resolved]
  - Immune reconstitution inflammatory syndrome [Recovered/Resolved]
  - Epstein-Barr virus infection [Recovered/Resolved]
  - BK virus infection [Recovered/Resolved]
  - Neutropenia [Recovered/Resolved]
  - Cytomegalovirus infection [Recovered/Resolved]
  - Thrombocytopenia [Recovered/Resolved]
  - Encephalitis cytomegalovirus [Recovered/Resolved]
  - Drug ineffective [Unknown]
